FAERS Safety Report 11637519 (Version 2)
Quarter: 2016Q1

REPORT INFORMATION
  Report Type: Spontaneous
  Country: FR (occurrence: FR)
  Receive Date: 20151016
  Receipt Date: 20160104
  Transmission Date: 20160525
  Serious: Yes (Life-Threatening, Other)
  Sender: FDA-Public Use
  Company Number: FR-SA-2015SA162466

PATIENT
  Age: 69 Year
  Sex: Male

DRUGS (6)
  1. LASILIX [Concomitant]
     Active Substance: FUROSEMIDE
  2. REPAGLINIDE. [Concomitant]
     Active Substance: REPAGLINIDE
     Dosage: STRENGTH:0.5MG?ONCE DAILY
     Route: 065
  3. EUPANTOL [Concomitant]
     Active Substance: PANTOPRAZOLE SODIUM
     Dosage: STRENGTH: 20MG?ONCE DAILY
     Route: 065
  4. ALLOPURINOL. [Concomitant]
     Active Substance: ALLOPURINOL
     Dosage: STRENGTH:200MG?ONCE DAILY
     Route: 065
  5. SPIRONOLACTONE. [Concomitant]
     Active Substance: SPIRONOLACTONE
     Dosage: STRENGTH: 75MG?ONCE DAILY
     Route: 065
  6. LOVENOX [Suspect]
     Active Substance: ENOXAPARIN SODIUM
     Route: 065

REACTIONS (5)
  - Hemiplegia [Unknown]
  - Vascular stenosis [Unknown]
  - Cerebrovascular accident [Unknown]
  - Limb amputation [Unknown]
  - Heparin-induced thrombocytopenia [Unknown]

NARRATIVE: CASE EVENT DATE: 20151003
